FAERS Safety Report 15694619 (Version 1)
Quarter: 2018Q4

REPORT INFORMATION
  Report Type: Spontaneous
  Country: US (occurrence: US)
  Receive Date: 20181206
  Receipt Date: 20181206
  Transmission Date: 20190205
  Serious: No
  Sender: FDA-Public Use
  Company Number: US-ENDO PHARMACEUTICALS INC-2017-007924

PATIENT
  Age: 53 Year
  Sex: Male

DRUGS (2)
  1. XIAFLEX [Suspect]
     Active Substance: COLLAGENASE CLOSTRIDIUM HISTOLYTICUM
     Indication: PEYRONIE^S DISEASE
     Dosage: 0.58 MG, UNKNOWN, SECOND INJECTION OF FIRST CYCLE
     Route: 026
     Dates: start: 201711
  2. XIAFLEX [Suspect]
     Active Substance: COLLAGENASE CLOSTRIDIUM HISTOLYTICUM
     Dosage: 0.58 MG, UNKNOWN, FIRST INJECTION OF FIRST CYCLE
     Route: 026
     Dates: start: 201711, end: 201711

REACTIONS (4)
  - Skin exfoliation [Recovering/Resolving]
  - Skin discolouration [Recovering/Resolving]
  - Skin discomfort [Recovering/Resolving]
  - Skin necrosis [Recovered/Resolved]

NARRATIVE: CASE EVENT DATE: 201711
